FAERS Safety Report 21023512 (Version 1)
Quarter: 2022Q2

REPORT INFORMATION
  Report Type: Spontaneous
  Country: DE (occurrence: None)
  Receive Date: 20220629
  Receipt Date: 20220629
  Transmission Date: 20220721
  Serious: Yes (Other)
  Sender: FDA-Public Use
  Company Number: 2022A234836

PATIENT
  Age: 93 Year
  Sex: Male
  Weight: 80 kg

DRUGS (19)
  1. DAPAGLIFLOZIN [Suspect]
     Active Substance: DAPAGLIFLOZIN
     Route: 048
  2. MOXIFLOXACIN [Concomitant]
     Active Substance: MOXIFLOXACIN
     Route: 065
  3. RIVAROXABAN [Concomitant]
     Active Substance: RIVAROXABAN
     Route: 065
  4. CLOPIDOGREL [Concomitant]
     Active Substance: CLOPIDOGREL BISULFATE
     Route: 065
  5. PANTOPRAZOLE [Concomitant]
     Active Substance: PANTOPRAZOLE
     Route: 065
  6. TORSEMIDE [Concomitant]
     Active Substance: TORSEMIDE
     Route: 065
  7. BISOPROLOL [Concomitant]
     Active Substance: BISOPROLOL
     Route: 065
  8. CANDESARTAN [Concomitant]
     Active Substance: CANDESARTAN
     Route: 065
  9. SPIRONOLACTONE [Concomitant]
     Active Substance: SPIRONOLACTONE
     Route: 065
  10. ATORVASTATIN [Concomitant]
     Active Substance: ATORVASTATIN
     Route: 065
  11. EZETIMIBE [Concomitant]
     Active Substance: EZETIMIBE
     Route: 065
  12. LEVOTHYROXINE [Concomitant]
     Active Substance: LEVOTHYROXINE
     Route: 065
  13. MELPERONE [Concomitant]
     Active Substance: MELPERONE
     Route: 065
  14. PREGABALIN [Concomitant]
     Active Substance: PREGABALIN
     Route: 065
  15. NALOXONE HYDROCHLORIDE\TILIDINE HYDROCHLORIDE [Concomitant]
     Active Substance: NALOXONE HYDROCHLORIDE\TILIDINE HYDROCHLORIDE
     Dosage: 50/4 MG
     Route: 065
  16. BECLOMETHASONE DIPROPIONATE [Concomitant]
     Active Substance: BECLOMETHASONE DIPROPIONATE
     Dosage: 100 MICROGRAM
     Route: 065
  17. FORMOTEROL [Concomitant]
     Active Substance: FORMOTEROL
     Dosage: 6 MICROGRAM
     Route: 065
  18. DAPAGLIFLOZIN [Concomitant]
     Active Substance: DAPAGLIFLOZIN
     Route: 065
  19. SITAGLIPTIN [Concomitant]
     Active Substance: SITAGLIPTIN
     Route: 065

REACTIONS (14)
  - Acute myocardial infarction [Unknown]
  - Atrial fibrillation [Unknown]
  - Left ventricular dysfunction [Unknown]
  - Cardiac failure [Unknown]
  - Type 1 diabetes mellitus [Unknown]
  - Chronic kidney disease [Unknown]
  - Pneumonia [Unknown]
  - Infective exacerbation of chronic obstructive airways disease [Unknown]
  - Hypercholesterolaemia [Unknown]
  - Pleural effusion [Unknown]
  - Femur fracture [Unknown]
  - Faecaloma [Unknown]
  - Diverticulitis [Unknown]
  - Hypothyroidism [Unknown]

NARRATIVE: CASE EVENT DATE: 20190201
